FAERS Safety Report 6653237-5 (Version None)
Quarter: 2010Q1

REPORT INFORMATION
  Report Type: 
  Country: None (occurrence: None)
  Receive Date: 20100326
  Receipt Date: 20100320
  Transmission Date: 20100710
  Serious: Yes (Other)
  Sender: FDA-Public Use
  Company Number: JP-BAYER-200812242BYL

PATIENT
  Age: 61 Year
  Sex: Female
  Weight: 52 kg

DRUGS (12)
  1. NEXAVAR [Suspect]
     Indication: RENAL CELL CARCINOMA
     Dosage: UNIT DOSE: 200 MG
     Route: 048
     Dates: start: 20080905, end: 20080916
  2. OXYCONTIN [Concomitant]
     Route: 048
     Dates: start: 20080903
  3. FAMOTIDINE [Concomitant]
     Indication: NAUSEA
     Route: 048
     Dates: start: 20080904, end: 20080906
  4. GLYSENNID [Concomitant]
     Indication: CONSTIPATION
     Dosage: TOTAL DAILY DOSE: 12 MG
     Route: 048
     Dates: start: 20080905, end: 20081007
  5. CRAVIT [Concomitant]
     Dosage: UNIT DOSE: 100 MG
     Route: 048
     Dates: start: 20080912, end: 20080916
  6. MAGLAX [Concomitant]
     Indication: CONSTIPATION
     Dosage: TOTAL DAILY DOSE: 990 MG  UNIT DOSE: 330 MG
     Route: 048
     Dates: start: 20080922
  7. LAXOBERON [Concomitant]
     Indication: CONSTIPATION
     Dosage: TOTAL DAILY DOSE: 10 ML
     Route: 048
     Dates: start: 20080924
  8. ALLELOCK [Concomitant]
     Dosage: TOTAL DAILY DOSE: 10 MG  UNIT DOSE: 5 MG
     Route: 048
     Dates: start: 20080916, end: 20080930
  9. GARASONE [Concomitant]
     Route: 061
     Dates: start: 20080916
  10. ANTEBATE [Concomitant]
     Route: 061
     Dates: start: 20080917
  11. PREDNISOLONE [Concomitant]
     Dosage: TOTAL DAILY DOSE: 15 MG  UNIT DOSE: 5 MG
     Route: 048
     Dates: start: 20080917, end: 20080930
  12. HACHIAZULE [Concomitant]
     Indication: PROPHYLAXIS
     Dosage: TOTAL DAILY DOSE: 6 G  UNIT DOSE: 2 G
     Route: 049
     Dates: start: 20080909, end: 20081013

REACTIONS (2)
  - ERYTHEMA MULTIFORME [None]
  - STOMATITIS [None]
